FAERS Safety Report 6851857-6 (Version None)
Quarter: 2010Q3

REPORT INFORMATION
  Report Type: 
  Country: None (occurrence: None)
  Receive Date: 20100717
  Receipt Date: 20071030
  Transmission Date: 20110219
  Serious: No
  Sender: FDA-Public Use
  Company Number: US-PFIZER INC-2007092779

PATIENT
  Sex: Female
  Weight: 62.6 kg

DRUGS (11)
  1. CHANTIX [Suspect]
     Indication: SMOKING CESSATION THERAPY
     Route: 048
     Dates: start: 20071008, end: 20071025
  2. NORVASC [Concomitant]
  3. LISINOPRIL [Concomitant]
  4. NEXIUM [Concomitant]
  5. TOPROL-XL [Concomitant]
  6. PLAVIX [Concomitant]
  7. CRESTOR [Concomitant]
  8. PREMARIN [Concomitant]
  9. ULTRAM [Concomitant]
     Indication: MUSCULOSKELETAL DISCOMFORT
  10. XANAX [Concomitant]
  11. ANALGESICS [Concomitant]

REACTIONS (3)
  - HEADACHE [None]
  - NAUSEA [None]
  - VOMITING [None]
